FAERS Safety Report 4825803-0 (Version None)
Quarter: 2005Q4

REPORT INFORMATION
  Report Type: 
  Country: None (occurrence: None)
  Receive Date: 20051111
  Receipt Date: 20051108
  Transmission Date: 20060501
  Serious: Yes (Hospitalization)
  Sender: FDA-Public Use
  Company Number: GB-GLAXOSMITHKLINE-B0399886A

PATIENT
  Age: 40 Year
  Sex: Female

DRUGS (4)
  1. ZIDOVUDINE [Suspect]
     Indication: PROPHYLAXIS
     Dosage: 250MG PER DAY
     Route: 048
     Dates: start: 20050812, end: 20050822
  2. LAMIVUDINE [Suspect]
     Indication: PROPHYLAXIS
     Dosage: 150MG PER DAY
     Route: 048
     Dates: start: 20050812, end: 20050822
  3. NELFINAVIR [Suspect]
     Indication: PROPHYLAXIS
     Dosage: 1250MG PER DAY
     Route: 048
     Dates: start: 20050812, end: 20050822
  4. ORAL CONTRACEPTIVE [Concomitant]
     Route: 065

REACTIONS (4)
  - DIARRHOEA [None]
  - JAUNDICE [None]
  - MALAISE [None]
  - NAUSEA [None]
